FAERS Safety Report 5279032-X (Version None)
Quarter: 2007Q1

REPORT INFORMATION
  Report Type: 
  Country: None (occurrence: None)
  Receive Date: 20070328
  Receipt Date: 20061128
  Transmission Date: 20070707
  Serious: Yes (Hospitalization)
  Sender: FDA-Public Use
  Company Number: US-AMGEN-US201701

PATIENT
  Sex: Male

DRUGS (6)
  1. NEULASTA [Suspect]
     Indication: CHEMOTHERAPY
     Route: 058
     Dates: start: 20061011, end: 20061011
  2. CAMPATH [Suspect]
     Route: 058
     Dates: start: 20060424, end: 20060929
  3. FLUDARABINE [Suspect]
     Route: 042
     Dates: start: 20060424, end: 20060929
  4. BACTRIM DS [Concomitant]
  5. FAMVIR [Concomitant]
  6. ARANESP [Concomitant]

REACTIONS (1)
  - FEBRILE NEUTROPENIA [None]
